FAERS Safety Report 16216401 (Version 1)
Quarter: 2019Q2

REPORT INFORMATION
  Report Type: Spontaneous
  Country: FR (occurrence: FR)
  Receive Date: 20190419
  Receipt Date: 20190419
  Transmission Date: 20190711
  Serious: Yes (Hospitalization)
  Sender: FDA-Public Use
  Company Number: FR-TEVA-2019-FR-1037670

PATIENT
  Age: 35 Year
  Sex: Male

DRUGS (5)
  1. ALPRAZOLAM. [Suspect]
     Active Substance: ALPRAZOLAM
     Indication: SUICIDE ATTEMPT
     Dosage: 3 BOXES OF 30 CP OF 0.5 MG
     Route: 048
     Dates: start: 20171114, end: 20171114
  2. PARKINANE L P 5 MG, G?LULE ? LIB?RATION PROLONG?E [Suspect]
     Active Substance: TRIHEXYPHENIDYL HYDROCHLORIDE
     Indication: SUICIDE ATTEMPT
     Dosage: ENTIRE WEEK
     Route: 048
     Dates: start: 20171114, end: 20171114
  3. OLANZAPINE. [Suspect]
     Active Substance: OLANZAPINE
     Indication: SUICIDE ATTEMPT
     Dosage: ENTIRE WEEK (20 MG)
     Route: 048
     Dates: start: 20171114, end: 20171114
  4. TERALITHE [Suspect]
     Active Substance: LITHIUM CARBONATE
     Indication: SUICIDE ATTEMPT
     Dosage: ENTIRE WEEK
     Route: 048
     Dates: start: 20171114, end: 20171114
  5. LOXAPAC 50 MG, COMPRIM? PELLICUL? [Suspect]
     Active Substance: LOXAPINE SUCCINATE
     Indication: SUICIDE ATTEMPT
     Dosage: 4 BOXES OF 30 CP OF 50 MG
     Route: 048
     Dates: start: 20171114, end: 20171114

REACTIONS (4)
  - Somnolence [Recovered/Resolved]
  - Miosis [Recovered/Resolved]
  - Toxicity to various agents [Recovered/Resolved]
  - Hypothermia [Recovered/Resolved]

NARRATIVE: CASE EVENT DATE: 20171114
